FAERS Safety Report 12191168 (Version 1)
Quarter: 2016Q1

REPORT INFORMATION
  Report Type: Spontaneous
  Country: US (occurrence: None)
  Receive Date: 20160317
  Receipt Date: 20160317
  Transmission Date: 20160526
  Serious: No
  Sender: FDA-Public Use
  Company Number: None

PATIENT
  Age: 36 Year
  Sex: Female

DRUGS (12)
  1. FAXLODEX [Concomitant]
  2. GABAPENTIN. [Concomitant]
     Active Substance: GABAPENTIN
  3. XOLADEX [Concomitant]
  4. CITALOPRAM [Concomitant]
     Active Substance: CITALOPRAM HYDROBROMIDE
  5. SMZ/TMP [Concomitant]
     Active Substance: SULFAMETHOXAZOLE\TRIMETHOPRIM
  6. RANITIDINE [Concomitant]
     Active Substance: RANITIDINE\RANITIDINE HYDROCHLORIDE
  7. MEHTLPHENID [Concomitant]
  8. CEFPODOXIME [Concomitant]
     Active Substance: CEFPODOXIME
  9. MODAFINIL. [Concomitant]
     Active Substance: MODAFINIL
  10. XIFAXAN [Concomitant]
     Active Substance: RIFAXIMIN
  11. XGEVA [Concomitant]
     Active Substance: DENOSUMAB
  12. IBRANCE [Suspect]
     Active Substance: PALBOCICLIB
     Indication: BREAST CANCER
     Dosage: 1 CAP DAILY PO?1-15-2015 TO ONGOING BUT DECR
     Route: 048
     Dates: start: 20150115

REACTIONS (1)
  - Neutrophil count decreased [None]

NARRATIVE: CASE EVENT DATE: 20160315
